FAERS Safety Report 5570490-X (Version None)
Quarter: 2007Q4

REPORT INFORMATION
  Report Type: 
  Country: None (occurrence: None)
  Receive Date: 20071221
  Receipt Date: 20071030
  Transmission Date: 20080405
  Serious: No
  Sender: FDA-Public Use
  Company Number: US-BRISTOL-MYERS SQUIBB COMPANY-13963137

PATIENT
  Age: 89 Year
  Sex: Female
  Weight: 49 kg

DRUGS (2)
  1. ORENCIA [Suspect]
  2. PREDNISONE [Concomitant]

REACTIONS (3)
  - GASTROINTESTINAL INFECTION [None]
  - NAUSEA [None]
  - RASH MACULAR [None]
